FAERS Safety Report 5140732-3 (Version None)
Quarter: 2006Q4

REPORT INFORMATION
  Report Type: 
  Country: None (occurrence: None)
  Receive Date: 20061025
  Receipt Date: 20061017
  Transmission Date: 20070319
  Serious: Yes (Life-Threatening, Hospitalization)
  Sender: FDA-Public Use
  Company Number: GXKR2006FR03438

PATIENT
  Age: 72 Year
  Sex: Female

DRUGS (2)
  1. CO-TRIMOXAZOLE (NGX) (SULFAMETHOXAZOLE, TRIMETHOPRIM) UNKNOW [Suspect]
     Indication: PNEUMOCYSTIS JIROVECI PNEUMONIA
     Dosage: UNK, UNK, UNK
  2. METHOTREXATE [Concomitant]

REACTIONS (8)
  - CYTOLYTIC HEPATITIS [None]
  - DRUG TOXICITY [None]
  - ENCEPHALITIS HERPES [None]
  - HAEMOGLOBIN DECREASED [None]
  - HYPERSENSITIVITY [None]
  - PANCYTOPENIA [None]
  - RENAL FAILURE [None]
  - WHITE BLOOD CELL COUNT DECREASED [None]
